FAERS Safety Report 21171034 (Version 2)
Quarter: 2022Q3

REPORT INFORMATION
  Report Type: Spontaneous
  Country: PR (occurrence: PR)
  Receive Date: 20220804
  Receipt Date: 20220808
  Transmission Date: 20221027
  Serious: No
  Sender: FDA-Public Use
  Company Number: PR-PFIZER INC-PV202200034352

PATIENT
  Sex: Female

DRUGS (1)
  1. PAXLOVID [Suspect]
     Active Substance: NIRMATRELVIR\RITONAVIR
     Indication: COVID-19 treatment
     Dosage: UNK
     Dates: start: 202207

REACTIONS (10)
  - Feeling abnormal [Recovering/Resolving]
  - Skin odour abnormal [Recovering/Resolving]
  - Abnormal faeces [Recovering/Resolving]
  - Malaise [Recovering/Resolving]
  - Nausea [Recovering/Resolving]
  - Headache [Recovering/Resolving]
  - Dysgeusia [Unknown]
  - Breath odour [Unknown]
  - Burning sensation [Unknown]
  - Vomiting [Unknown]

NARRATIVE: CASE EVENT DATE: 20220701
